FAERS Safety Report 5560650-6 (Version None)
Quarter: 2007Q4

REPORT INFORMATION
  Report Type: 
  Country: None (occurrence: None)
  Receive Date: 20071215
  Receipt Date: 20071114
  Transmission Date: 20080405
  Serious: No
  Sender: FDA-Public Use
  Company Number: US-ABBOTT-07P-163-0425368-00

PATIENT
  Sex: Male
  Weight: 64.014 kg

DRUGS (1)
  1. HUMIRA [Suspect]
     Indication: ANKYLOSING SPONDYLITIS
     Dosage: PRODUCT DISCARDED
     Route: 058
     Dates: start: 20041001, end: 20050101

REACTIONS (1)
  - INJECTION SITE RASH [None]
